FAERS Safety Report 5138247-1 (Version None)
Quarter: 2006Q4

REPORT INFORMATION
  Report Type: 
  Country: None (occurrence: None)
  Receive Date: 20061030
  Receipt Date: 20060803
  Transmission Date: 20070319
  Serious: Yes (Hospitalization)
  Sender: FDA-Public Use
  Company Number: US-GLAXOSMITHKLINE-A0615060A

PATIENT
  Age: 4 Year
  Sex: Female

DRUGS (2)
  1. ADVAIR HFA [Suspect]
     Indication: ASTHMA
     Route: 055
  2. NO CONCURRENT MEDICATION [Concomitant]

REACTIONS (2)
  - TACHYCARDIA [None]
  - TREMOR [None]
